FAERS Safety Report 19203397 (Version 3)
Quarter: 2021Q3

REPORT INFORMATION
  Report Type: Other
  Country: IT (occurrence: IT)
  Receive Date: 20210503
  Receipt Date: 20210713
  Transmission Date: 20211014
  Serious: Yes (Hospitalization)
  Sender: FDA-Public Use
  Company Number: IT-ROCHE-2670788

PATIENT
  Age: 60 Year
  Sex: Female

DRUGS (13)
  1. POTASSIUM SALTS (UNK INGREDIENTS) [Suspect]
     Active Substance: POTASSIUM
     Indication: BLOOD MAGNESIUM
     Route: 065
  2. DEXAMETHASONE. [Concomitant]
     Active Substance: DEXAMETHASONE
     Indication: OEDEMA
     Dosage: 3 DAYS
  3. MAGNESIUM SULPHATE [Concomitant]
     Active Substance: MAGNESIUM SULFATE
     Indication: OEDEMA
  4. PALBOCICLIB [Suspect]
     Active Substance: PALBOCICLIB
     Indication: BREAST CANCER STAGE IV
     Route: 065
  5. FULVESTRANT. [Suspect]
     Active Substance: FULVESTRANT
     Indication: BREAST CANCER STAGE IV
     Route: 065
  6. FONDAPARINUX [Concomitant]
     Active Substance: FONDAPARINUX
     Indication: ANTICOAGULANT THERAPY
     Route: 065
  7. LEVETIRACETAM. [Concomitant]
     Active Substance: LEVETIRACETAM
     Indication: SEIZURE
     Route: 065
  8. LEVETIRACETAM. [Concomitant]
     Active Substance: LEVETIRACETAM
  9. MAGNESIUM SALTS [Suspect]
     Active Substance: MAGNESIUM
     Indication: BLOOD MAGNESIUM
     Route: 065
  10. MANNITOL. [Concomitant]
     Active Substance: MANNITOL
     Indication: OEDEMA
  11. METOCLOPRAMIDE. [Concomitant]
     Active Substance: METOCLOPRAMIDE
  12. FONDAPARINUX SODIUM. [Concomitant]
     Active Substance: FONDAPARINUX SODIUM
  13. BEVACIZUMAB. [Suspect]
     Active Substance: BEVACIZUMAB
     Indication: BREAST CANCER STAGE IV
     Route: 042

REACTIONS (8)
  - Cerebral venous thrombosis [Recovering/Resolving]
  - Proteinuria [Unknown]
  - Posterior reversible encephalopathy syndrome [Unknown]
  - Depressed level of consciousness [Recovered/Resolved]
  - Hypertension [Unknown]
  - Hypomagnesaemia [Unknown]
  - Ascites [Unknown]
  - Vomiting [Unknown]
